FAERS Safety Report 19374956 (Version 1)
Quarter: 2021Q2

REPORT INFORMATION
  Report Type: Spontaneous
  Country: JP (occurrence: JP)
  Receive Date: 20210604
  Receipt Date: 20210604
  Transmission Date: 20210717
  Serious: Yes (Hospitalization)
  Sender: FDA-Public Use
  Company Number: JP-LUPIN PHARMACEUTICALS INC.-2021-08764

PATIENT
  Age: 4 Year
  Sex: Male

DRUGS (2)
  1. VANCOMYCIN [Suspect]
     Active Substance: VANCOMYCIN
     Indication: ABSCESS
     Dosage: 15 MILLIGRAM/KILOGRAM, QID
     Route: 065
  2. CEFAZOLIN [Concomitant]
     Active Substance: CEFAZOLIN
     Indication: ABSCESS
     Dosage: 50 MILLIGRAM/KILOGRAM, TID
     Route: 065

REACTIONS (1)
  - Pyrexia [Recovered/Resolved]
